FAERS Safety Report 10050488 (Version 1)
Quarter: 2014Q2

REPORT INFORMATION
  Report Type: Spontaneous
  Country: US (occurrence: US)
  Receive Date: 20140401
  Receipt Date: 20140401
  Transmission Date: 20141212
  Serious: No
  Sender: FDA-Public Use
  Company Number: US-ASTRAZENECA-2013SE79464

PATIENT
  Age: 5 Year
  Sex: Female
  Weight: 17.5 kg

DRUGS (5)
  1. NEXIUM [Suspect]
     Indication: GASTROOESOPHAGEAL REFLUX DISEASE
     Route: 048
     Dates: start: 20131025, end: 20131027
  2. NEXIUM [Suspect]
     Indication: ULCER
     Route: 048
     Dates: start: 20131025, end: 20131027
  3. PHENOBARBITAL [Concomitant]
     Indication: CONVULSION
     Route: 050
     Dates: start: 2012
  4. PREVACID [Concomitant]
     Route: 050
     Dates: start: 2009
  5. SUPPLEMENTS [Concomitant]

REACTIONS (2)
  - Tremor [Unknown]
  - Off label use [Unknown]
